FAERS Safety Report 4359363-8 (Version None)
Quarter: 2004Q2

REPORT INFORMATION
  Report Type: 
  Country: None (occurrence: None)
  Receive Date: 20040518
  Receipt Date: 20040506
  Transmission Date: 20050107
  Serious: Yes (Other)
  Sender: FDA-Public Use
  Company Number: GB-JNJFOC-20040501025

PATIENT
  Age: 20 Year
  Sex: Female

DRUGS (1)
  1. REMICADE [Suspect]
     Indication: CROHN'S DISEASE
     Route: 042

REACTIONS (5)
  - COUGH [None]
  - DYSPNOEA [None]
  - MALAISE [None]
  - RASH [None]
  - SKIN DISCOLOURATION [None]
